FAERS Safety Report 6601747-9 (Version None)
Quarter: 2010Q1

REPORT INFORMATION
  Report Type: 
  Country: None (occurrence: None)
  Receive Date: 20100225
  Receipt Date: 20081202
  Transmission Date: 20100710
  Serious: Yes (Other)
  Sender: FDA-Public Use
  Company Number: US-BRISTOL-MYERS SQUIBB COMPANY-14427496

PATIENT
  Age: 53 Year
  Sex: Female
  Weight: 119 kg

DRUGS (6)
  1. ORENCIA [Suspect]
     Indication: RHEUMATOID ARTHRITIS
     Dosage: 1 DOSAGE FORM = 4 VIALS
     Dates: start: 20080401
  2. METHOTREXATE [Concomitant]
  3. PLAQUENIL [Concomitant]
  4. PRAVASTATIN [Concomitant]
  5. LEXAPRO [Concomitant]
  6. LEVOTHYROXINE [Concomitant]

REACTIONS (1)
  - MYCOBACTERIUM CHELONEI INFECTION [None]
